FAERS Safety Report 8173406-5 (Version None)
Quarter: 2012Q1

REPORT INFORMATION
  Report Type: 
  Country: None (occurrence: None)
  Receive Date: 20120229
  Receipt Date: 20120221
  Transmission Date: 20120608
  Serious: Yes (Hospitalization)
  Sender: FDA-Public Use
  Company Number: KR-JNJFOC-20120211664

PATIENT
  Sex: Male

DRUGS (4)
  1. UROALPHA [Concomitant]
     Route: 048
  2. FINASTERIDE [Concomitant]
  3. XARELTO [Suspect]
     Indication: THROMBOSIS PROPHYLAXIS
     Route: 048
     Dates: start: 20120217, end: 20120221
  4. XARELTO [Suspect]
     Indication: KNEE ARTHROPLASTY
     Route: 048
     Dates: start: 20120217, end: 20120221

REACTIONS (1)
  - DEEP VEIN THROMBOSIS [None]
